FAERS Safety Report 5040966-2 (Version None)
Quarter: 2006Q2

REPORT INFORMATION
  Report Type: 
  Country: None (occurrence: None)
  Receive Date: 20060601
  Receipt Date: 20060307
  Transmission Date: 20061013
  Serious: No
  Sender: FDA-Public Use
  Company Number: 2006PV009803

PATIENT
  Age: 49 Year
  Sex: Male
  Weight: 76.2043 kg

DRUGS (3)
  1. BYETTA [Suspect]
     Indication: DIABETES MELLITUS NON-INSULIN-DEPENDENT
     Dosage: 5 MCG;BID;SC
     Route: 058
     Dates: start: 20060201
  2. ASPIRIN [Concomitant]
  3. ACTOS [Concomitant]

REACTIONS (9)
  - BOWEL SOUNDS ABNORMAL [None]
  - CHEST DISCOMFORT [None]
  - DECREASED APPETITE [None]
  - EARLY SATIETY [None]
  - FLATULENCE [None]
  - INJECTION SITE BRUISING [None]
  - MUSCULOSKELETAL DISCOMFORT [None]
  - NAUSEA [None]
  - WEIGHT DECREASED [None]
